FAERS Safety Report 7766243-4 (Version None)
Quarter: 2011Q3

REPORT INFORMATION
  Report Type: 
  Country: None (occurrence: None)
  Receive Date: 20110921
  Receipt Date: 20110915
  Transmission Date: 20111222
  Serious: Yes (Other)
  Sender: FDA-Public Use
  Company Number: GB-BRISTOL-MYERS SQUIBB COMPANY-16050809

PATIENT
  Age: 60 Year
  Sex: Female
  Weight: 66 kg

DRUGS (7)
  1. OXALIPLATIN [Suspect]
     Indication: COLORECTAL CANCER METASTATIC
     Dosage: LAST DOSE ON 11JUL2011
     Dates: start: 20061229, end: 20070711
  2. DOUBLEBASE [Concomitant]
     Route: 061
     Dates: start: 20100901
  3. CETUXIMAB [Suspect]
     Indication: COLORECTAL CANCER METASTATIC
     Dosage: LAST DOSE ON 30MAR2011
     Dates: start: 20061229, end: 20110330
  4. EPADERM [Concomitant]
     Dosage: OINTMENT
     Route: 061
     Dates: start: 20090701
  5. HYDROCORTISONE [Concomitant]
     Dosage: 2.5%
     Route: 061
     Dates: start: 20110428
  6. FLUOROURACIL [Suspect]
     Indication: COLORECTAL CANCER METASTATIC
     Dosage: LAST DOSE ON 23MAR11.
     Dates: start: 20061229, end: 20110323
  7. EUMOVATE [Concomitant]
     Dosage: OINTMENT
     Route: 061
     Dates: start: 20090701

REACTIONS (1)
  - THYMUS ENLARGEMENT [None]
